FAERS Safety Report 5014673-6 (Version None)
Quarter: 2006Q2

REPORT INFORMATION
  Report Type: 
  Country: None (occurrence: None)
  Receive Date: 20060531
  Receipt Date: 20060524
  Transmission Date: 20061013
  Serious: Yes (Death, Hospitalization)
  Sender: FDA-Public Use
  Company Number: PHBS2006JP07648

PATIENT
  Age: 56 Year
  Sex: Male

DRUGS (2)
  1. PREDNISOLONE [Concomitant]
     Indication: UNRELATED DONOR BONE MARROW TRANSPLANTATION THERAPY
  2. NEORAL [Suspect]
     Indication: UNRELATED DONOR BONE MARROW TRANSPLANTATION THERAPY
     Route: 065

REACTIONS (2)
  - HEPATORENAL FAILURE [None]
  - PERICARDITIS CONSTRICTIVE [None]
